FAERS Safety Report 19223006 (Version 1)
Quarter: 2021Q2

REPORT INFORMATION
  Report Type: Spontaneous
  Country: US (occurrence: US)
  Receive Date: 20210506
  Receipt Date: 20210506
  Transmission Date: 20210717
  Serious: Yes (Other)
  Sender: FDA-Public Use
  Company Number: US-GLAXOSMITHKLINE-US2021GSK098495

PATIENT
  Sex: Female

DRUGS (8)
  1. RANITIDINE. [Suspect]
     Active Substance: RANITIDINE
     Dosage: |BOTH
     Route: 065
     Dates: start: 199101, end: 201801
  2. RANITIDINE. [Suspect]
     Active Substance: RANITIDINE
     Dosage: |BOTH
     Route: 065
     Dates: start: 199101, end: 201801
  3. ZANTAC [Suspect]
     Active Substance: RANITIDINE HYDROCHLORIDE
     Dosage: |BOTH
     Route: 065
     Dates: start: 199101, end: 201801
  4. RANITIDINE. [Suspect]
     Active Substance: RANITIDINE
     Dosage: |BOTH
     Route: 065
     Dates: start: 199101, end: 201801
  5. RANITIDINE. [Suspect]
     Active Substance: RANITIDINE
     Dosage: UNKNOWN AT THIS TIME BOTH
     Route: 065
     Dates: start: 199101, end: 201801
  6. ZANTAC [Suspect]
     Active Substance: RANITIDINE HYDROCHLORIDE
     Dosage: |BOTH
     Route: 065
     Dates: start: 199101, end: 201801
  7. RANITIDINE. [Suspect]
     Active Substance: RANITIDINE
     Dosage: UNKNOWN AT THIS TIME BOTH
     Route: 065
     Dates: start: 199101, end: 201801
  8. RANITIDINE CAPSULE [Suspect]
     Active Substance: RANITIDINE
     Dosage: |BOTH
     Route: 065
     Dates: start: 199101, end: 201801

REACTIONS (1)
  - Colorectal cancer [Unknown]
